FAERS Safety Report 6250679-7 (Version None)
Quarter: 2009Q2

REPORT INFORMATION
  Report Type: 
  Country: None (occurrence: None)
  Receive Date: 20090626
  Receipt Date: 20090616
  Transmission Date: 20091009
  Serious: Yes (Death)
  Sender: FDA-Public Use
  Company Number: 2008-03901

PATIENT
  Age: 79 Year
  Sex: Male

DRUGS (18)
  1. VELCADE [Suspect]
     Indication: MULTIPLE MYELOMA
     Dosage: 2 MG, INTRAVENOUS, 1.5 MG
     Route: 042
     Dates: start: 20070226, end: 20070308
  2. VELCADE [Suspect]
     Indication: MULTIPLE MYELOMA
     Dosage: 2 MG, INTRAVENOUS, 1.5 MG
     Route: 042
     Dates: start: 20070326, end: 20071115
  3. DEXAMETHASONE [Concomitant]
  4. PREDNISOLONE [Concomitant]
  5. FAMOTIDINE [Concomitant]
  6. PAXIL [Concomitant]
  7. PYDOXAL (PYRIDOXAL PHOSPHATE) [Concomitant]
  8. ISONIAZID [Concomitant]
  9. ETODOLAC [Concomitant]
  10. SLOW-K [Concomitant]
  11. PURSENNID (SENNA LEAF) [Concomitant]
  12. SULFAMETHOXAZOLE AND TRIMETHOPRIM [Concomitant]
  13. MIDODRINE HYDROCHLORIDE [Concomitant]
  14. ALLOPURINOL [Concomitant]
  15. TRANSAMIN (TRANEXAMIC ACID) [Concomitant]
  16. LASIX [Concomitant]
  17. HIRUDOID (HEPARINOID) [Concomitant]
  18. NETICONAZOLE HYDROCHLORIDE [Concomitant]

REACTIONS (10)
  - BLOOD ALKALINE PHOSPHATASE INCREASED [None]
  - BLOOD LACTATE DEHYDROGENASE INCREASED [None]
  - BLOOD UREA INCREASED [None]
  - BRONCHITIS [None]
  - CONSTIPATION [None]
  - DISEASE PROGRESSION [None]
  - MULTIPLE MYELOMA [None]
  - NEUROPATHY PERIPHERAL [None]
  - PLATELET COUNT DECREASED [None]
  - RASH [None]
